FAERS Safety Report 14903811 (Version 1)
Quarter: 2018Q2

REPORT INFORMATION
  Report Type: Spontaneous
  Country: US (occurrence: US)
  Receive Date: 20180516
  Receipt Date: 20180516
  Transmission Date: 20180711
  Serious: No
  Sender: FDA-Public Use
  Company Number: ALCN2014US003699

PATIENT
  Age: 35 Year
  Sex: Female

DRUGS (2)
  1. ZADITOR [Suspect]
     Active Substance: KETOTIFEN FUMARATE
     Indication: EYE ALLERGY
     Dosage: 1 GTT, BID
     Route: 047
     Dates: start: 201404
  2. ZADITOR [Suspect]
     Active Substance: KETOTIFEN FUMARATE
     Dosage: 1 GTT, BID
     Route: 047
     Dates: start: 201405

REACTIONS (3)
  - Drug ineffective [Not Recovered/Not Resolved]
  - Eye pruritus [Not Recovered/Not Resolved]
  - Lacrimation disorder [Not Recovered/Not Resolved]

NARRATIVE: CASE EVENT DATE: 201404
